FAERS Safety Report 12127763 (Version 2)
Quarter: 2017Q3

REPORT INFORMATION
  Report Type: Spontaneous
  Country: FR (occurrence: FR)
  Receive Date: 20160229
  Receipt Date: 20170816
  Transmission Date: 20171127
  Serious: Yes (Hospitalization, Other)
  Sender: FDA-Public Use
  Company Number: FR-BAXTER-2016BAX008567

PATIENT
  Age: 46 Year
  Sex: Male

DRUGS (14)
  1. HOLOXAN 2000 MG, POUDRE POUR USAGE PARENT?RAL [Suspect]
     Active Substance: IFOSFAMIDE
     Dosage: NEW COURSE OF ICE PROTOCOL
     Route: 042
     Dates: start: 20160318, end: 20160318
  2. CARBOPLATINE SUN [Suspect]
     Active Substance: CARBOPLATIN
     Indication: HODGKIN^S DISEASE RECURRENT
     Dosage: ON D2
     Route: 042
     Dates: start: 20160121, end: 20160121
  3. XANAX [Concomitant]
     Active Substance: ALPRAZOLAM
     Indication: PRODUCT USED FOR UNKNOWN INDICATION
     Route: 048
  4. ZOPHREN [Concomitant]
     Active Substance: ONDANSETRON
     Indication: PRODUCT USED FOR UNKNOWN INDICATION
     Dosage: ON D1, D2, AND D3
     Route: 065
     Dates: start: 20160120, end: 20160122
  5. ETOPOSIDE TEVA [Suspect]
     Active Substance: ETOPOSIDE
     Indication: HODGKIN^S DISEASE RECURRENT
     Dosage: ON D1, D2, AND D3,
     Route: 042
     Dates: start: 20160120, end: 20160122
  6. TAMIFLU [Suspect]
     Active Substance: OSELTAMIVIR PHOSPHATE
     Indication: ANTIVIRAL PROPHYLAXIS
     Route: 048
     Dates: start: 20160201, end: 20160210
  7. MESNA. [Concomitant]
     Active Substance: MESNA
     Indication: PRODUCT USED FOR UNKNOWN INDICATION
     Dosage: ON D2
     Route: 065
     Dates: start: 20160121, end: 20160121
  8. GRANOCYTE [Concomitant]
     Active Substance: LENOGRASTIM
     Indication: PRODUCT USED FOR UNKNOWN INDICATION
     Dosage: 34 FROM D6 TO D13
     Route: 065
     Dates: start: 20160125, end: 20160201
  9. CARBOPLATINE SUN [Suspect]
     Active Substance: CARBOPLATIN
     Dosage: NEW COURSE OF ICE PROTOCOL
     Route: 042
     Dates: start: 20160318, end: 20160318
  10. ETOPOSIDE TEVA [Suspect]
     Active Substance: ETOPOSIDE
     Dosage: NEW COURSE OF ICE PROTOCOL
     Route: 042
     Dates: start: 20160318, end: 20160318
  11. PRIMPERAN [Concomitant]
     Active Substance: METOCLOPRAMIDE HYDROCHLORIDE
     Indication: PRODUCT USED FOR UNKNOWN INDICATION
     Route: 048
  12. INIPOMP [Concomitant]
     Active Substance: PANTOPRAZOLE SODIUM
     Indication: PRODUCT USED FOR UNKNOWN INDICATION
     Route: 048
  13. MESNA. [Concomitant]
     Active Substance: MESNA
     Dosage: TWO LOTS ON D3
     Route: 065
     Dates: start: 20160122, end: 20160122
  14. HOLOXAN 2000 MG, POUDRE POUR USAGE PARENT?RAL [Suspect]
     Active Substance: IFOSFAMIDE
     Indication: HODGKIN^S DISEASE RECURRENT
     Dosage: ON D2
     Route: 042
     Dates: start: 20160121, end: 20160121

REACTIONS (7)
  - Vomiting [Unknown]
  - Drug intolerance [Unknown]
  - Nasopharyngitis [Unknown]
  - Acute coronary syndrome [Unknown]
  - Agranulocytosis [Unknown]
  - General physical health deterioration [Unknown]
  - Erythema [Unknown]

NARRATIVE: CASE EVENT DATE: 20160120
